FAERS Safety Report 5166560-0 (Version None)
Quarter: 2006Q4

REPORT INFORMATION
  Report Type: 
  Country: None (occurrence: None)
  Receive Date: 20061129
  Receipt Date: 20061113
  Transmission Date: 20070319
  Serious: Yes (Hospitalization, Other)
  Sender: FDA-Public Use
  Company Number: 2006001256

PATIENT
  Age: 66 Year
  Sex: Male

DRUGS (5)
  1. TARCEVA [Suspect]
     Indication: RECTAL CANCER METASTATIC
     Dosage: ORAL
     Route: 048
     Dates: start: 20060301
  2. AVASTIN [Suspect]
     Dosage: 300 MG, INTRAVENOUS
     Route: 042
     Dates: start: 20060208, end: 20060515
  3. GEMZAR [Concomitant]
  4. XELODA [Concomitant]
  5. ERBITUX [Concomitant]

REACTIONS (7)
  - BARRETT'S OESOPHAGUS [None]
  - CARCINOEMBRYONIC ANTIGEN INCREASED [None]
  - GASTRITIS EROSIVE [None]
  - GENERAL PHYSICAL HEALTH DETERIORATION [None]
  - OESOPHAGEAL HAEMORRHAGE [None]
  - OESOPHAGITIS ULCERATIVE [None]
  - THROMBOSIS [None]
